FAERS Safety Report 10079284 (Version 1)
Quarter: 2014Q2

REPORT INFORMATION
  Report Type: Spontaneous
  Country: US (occurrence: None)
  Receive Date: 20140414
  Receipt Date: 20140414
  Transmission Date: 20141212
  Serious: No
  Sender: FDA-Public Use
  Company Number: None

PATIENT
  Sex: Male

DRUGS (2)
  1. OXYCODONE/APAP [Suspect]
     Indication: NECK PAIN
     Dosage: 2 DOSES, TAKEN BY MOUTH
     Route: 048
  2. OXYCODONE/APAP [Suspect]
     Indication: SPINAL PAIN
     Dosage: 2 DOSES, TAKEN BY MOUTH
     Route: 048

REACTIONS (5)
  - Product quality issue [None]
  - Product substitution issue [None]
  - Hypertension [None]
  - Skin burning sensation [None]
  - Dysgeusia [None]
